FAERS Safety Report 4451597-7 (Version None)
Quarter: 2004Q3

REPORT INFORMATION
  Report Type: 
  Country: None (occurrence: None)
  Receive Date: 20040915
  Receipt Date: 20040830
  Transmission Date: 20050211
  Serious: Yes (Hospitalization)
  Sender: FDA-Public Use
  Company Number: 2004-00388

PATIENT
  Age: 81 Year
  Sex: Female
  Weight: 44.4 kg

DRUGS (1)
  1. VELCADE [Suspect]
     Indication: MULTIPLE MYELOMA
     Dosage: 1.00 MG, IV BOLUS
     Route: 040
     Dates: start: 20040524, end: 20040823

REACTIONS (3)
  - ACCIDENTAL OVERDOSE [None]
  - PNEUMONIA ASPIRATION [None]
  - THROMBOCYTOPENIA [None]
